FAERS Safety Report 25986874 (Version 1)
Quarter: 2025Q4

REPORT INFORMATION
  Report Type: Spontaneous
  Country: US (occurrence: US)
  Receive Date: 20251102
  Receipt Date: 20251102
  Transmission Date: 20260118
  Serious: No
  Sender: AMGEN
  Company Number: US-AMGEN-USASP2025213830

PATIENT
  Age: 73 Year
  Sex: Male

DRUGS (1)
  1. REPATHA [Suspect]
     Active Substance: EVOLOCUMAB
     Indication: Type IIa hyperlipidaemia
     Dosage: 140 MILLIGRAM
     Route: 065

REACTIONS (5)
  - Injection site pain [Recovered/Resolved]
  - Injection site swelling [Recovered/Resolved]
  - Tendonitis [Not Recovered/Not Resolved]
  - Myalgia [Not Recovered/Not Resolved]
  - Sleep disorder [Unknown]

NARRATIVE: CASE EVENT DATE: 20251001
